FAERS Safety Report 8786082 (Version 2)
Quarter: 2015Q2

REPORT INFORMATION
  Report Type: Report from Study
  Country: US (occurrence: US)
  Receive Date: 20120914
  Receipt Date: 20150625
  Transmission Date: 20150821
  Serious: Yes (Death)
  Sender: FDA-Public Use
  Company Number: US-ROCHE-1126632

PATIENT
  Sex: Female

DRUGS (7)
  1. DECADRON [Concomitant]
     Active Substance: DEXAMETHASONE
     Route: 042
  2. GRANISETRON [Concomitant]
     Active Substance: GRANISETRON
     Route: 042
  3. PEGFILGRASTIM [Concomitant]
     Active Substance: PEGFILGRASTIM
     Route: 058
  4. FLUZONE (UNITED STATES) [Concomitant]
  5. ABRAXANE [Concomitant]
     Active Substance: PACLITAXEL
     Route: 042
  6. ABRAXANE [Concomitant]
     Active Substance: PACLITAXEL
     Route: 042
  7. AVASTIN [Suspect]
     Active Substance: BEVACIZUMAB
     Indication: BREAST CANCER FEMALE
     Route: 042
     Dates: start: 20050719

REACTIONS (9)
  - Arthralgia [Unknown]
  - Injection site pain [Unknown]
  - Fatigue [Unknown]
  - Confusional state [Unknown]
  - Rectal haemorrhage [Unknown]
  - Off label use [Unknown]
  - Death [Fatal]
  - Pain in extremity [Unknown]
  - Asthenia [Unknown]
